FAERS Safety Report 23645870 (Version 3)
Quarter: 2024Q3

REPORT INFORMATION
  Report Type: Report from Study
  Country: US (occurrence: US)
  Receive Date: 20240319
  Receipt Date: 20240707
  Transmission Date: 20241017
  Serious: Yes (Other)
  Sender: ABBVIE
  Company Number: US-ABBVIE-5679202

PATIENT
  Sex: Female
  Weight: 93.893 kg

DRUGS (1)
  1. SKYRIZI [Suspect]
     Active Substance: RISANKIZUMAB-RZAA
     Indication: Psoriasis
     Route: 058
     Dates: start: 20230119

REACTIONS (8)
  - Uterine cancer [Unknown]
  - Abdominal mass [Unknown]
  - Ovarian cyst [Recovering/Resolving]
  - Pulmonary oedema [Unknown]
  - Ostomy bag placement [Unknown]
  - Incisional hernia [Unknown]
  - Stoma site oedema [Not Recovered/Not Resolved]
  - Localised oedema [Unknown]

NARRATIVE: CASE EVENT DATE: 20240101
